FAERS Safety Report 5866630-5 (Version None)
Quarter: 2008Q3

REPORT INFORMATION
  Report Type: 
  Country: None (occurrence: None)
  Receive Date: 20080827
  Receipt Date: 20080811
  Transmission Date: 20090109
  Serious: Yes (Death, Hospitalization)
  Sender: FDA-Public Use
  Company Number: 2008S1014809

PATIENT
  Age: 24 Year
  Sex: Female

DRUGS (6)
  1. AZATHIOPRINE [Suspect]
     Indication: LUNG TRANSPLANT
     Dosage: ORAL
     Route: 048
  2. PREDNISONE [Suspect]
     Indication: LUNG TRANSPLANT
  3. NEORAL [Suspect]
     Indication: LUNG TRANSPLANT
  4. AMPHOTERICIN B [Concomitant]
  5. ANTIBIOTICS (ANTIBIOTICS) [Concomitant]
  6. ITRACONAZOLE [Concomitant]

REACTIONS (16)
  - ABDOMINAL PAIN [None]
  - ASPERGILLOSIS [None]
  - CARDIAC MURMUR [None]
  - CARDIAC VALVE VEGETATION [None]
  - CIRCULATORY COLLAPSE [None]
  - DYSPNOEA [None]
  - EYE INFECTION FUNGAL [None]
  - EYE PAIN [None]
  - FUNGAL ENDOCARDITIS [None]
  - FUNGAL SEPSIS [None]
  - INTESTINAL INFARCTION [None]
  - MASS [None]
  - MITRAL VALVE INCOMPETENCE [None]
  - OCULAR HYPERAEMIA [None]
  - SEPTIC EMBOLUS [None]
  - VISUAL ACUITY REDUCED [None]
